FAERS Safety Report 8921560 (Version 1)
Quarter: 2012Q4

REPORT INFORMATION
  Report Type: 
  Country: CH (occurrence: CH)
  Receive Date: 20121121
  Receipt Date: 20121121
  Transmission Date: 20130627
  Serious: Yes (Hospitalization)
  Sender: FDA-Public Use
  Company Number: CH-ROCHE-344041

PATIENT
  Age: 46 Year
  Sex: Female
  Weight: 80 kg

DRUGS (1)
  1. ROCEPHIN [Suspect]
     Indication: LYME DISEASE
     Route: 042
     Dates: start: 20030610, end: 20030701

REACTIONS (3)
  - Cholelithiasis [Recovered/Resolved]
  - Hepatocellular injury [Recovered/Resolved]
  - Leukopenia [Recovered/Resolved]
